FAERS Safety Report 25187042 (Version 3)
Quarter: 2025Q2

REPORT INFORMATION
  Report Type: Report from Study
  Country: BE (occurrence: BE)
  Receive Date: 20250411
  Receipt Date: 20250521
  Transmission Date: 20250716
  Serious: Yes (Hospitalization, Disabling)
  Sender: OCTAPHARMA
  Company Number: BE-OCTA-2025000297

PATIENT
  Age: 10 Year
  Sex: Male

DRUGS (1)
  1. CUTAQUIG [Suspect]
     Active Substance: HUMAN IMMUNOGLOBULIN G
     Indication: Primary immunodeficiency syndrome
     Dosage: 18 ML
     Route: 058
     Dates: start: 20240424, end: 202503

REACTIONS (7)
  - Pyrexia [Not Recovered/Not Resolved]
  - Administration site bruise [Not Recovered/Not Resolved]
  - Pain in extremity [Not Recovered/Not Resolved]
  - Rathke^s cleft cyst [Not Recovered/Not Resolved]
  - Malaise [Recovering/Resolving]
  - Headache [Not Recovered/Not Resolved]
  - Injection site discolouration [Not Recovered/Not Resolved]

NARRATIVE: CASE EVENT DATE: 20241001
